FAERS Safety Report 26161404 (Version 1)
Quarter: 2025Q4

REPORT INFORMATION
  Report Type: Spontaneous
  Country: CN (occurrence: CN)
  Receive Date: 20251216
  Receipt Date: 20251216
  Transmission Date: 20260117
  Serious: Yes (Hospitalization)
  Sender: ROCHE
  Company Number: CN-ROCHE-10000456861

PATIENT
  Age: 66 Year
  Sex: Male

DRUGS (2)
  1. OBINUTUZUMAB [Suspect]
     Active Substance: OBINUTUZUMAB
     Indication: Marginal zone lymphoma
     Route: 041
     Dates: start: 20251104, end: 20251104
  2. ORELABRUTINIB [Suspect]
     Active Substance: ORELABRUTINIB
     Indication: Marginal zone lymphoma
     Route: 048
     Dates: start: 20251103, end: 20251124

REACTIONS (1)
  - Myelosuppression [Recovering/Resolving]

NARRATIVE: CASE EVENT DATE: 20251125
